FAERS Safety Report 8490358-9 (Version None)
Quarter: 2012Q3

REPORT INFORMATION
  Report Type: 
  Country: None (occurrence: None)
  Receive Date: 20120705
  Receipt Date: 20120628
  Transmission Date: 20120928
  Serious: Yes (Hospitalization, Other)
  Sender: FDA-Public Use
  Company Number: JP-PFIZER INC-2012152862

PATIENT
  Age: 80 Year
  Sex: Male

DRUGS (2)
  1. LYRICA [Suspect]
     Indication: SPINAL COLUMN STENOSIS
     Dosage: UNK
  2. LYRICA [Suspect]
     Dosage: 75 MG, 2X/DAY
     Route: 048
     Dates: start: 20120530

REACTIONS (3)
  - DIZZINESS [None]
  - BLOOD PRESSURE DECREASED [None]
  - SPINAL COLUMN STENOSIS [None]
